FAERS Safety Report 7146119-6 (Version None)
Quarter: 2010Q4

REPORT INFORMATION
  Report Type: 
  Country: None (occurrence: None)
  Receive Date: 20101124
  Receipt Date: 20101117
  Transmission Date: 20110411
  Serious: Yes (Other)
  Sender: FDA-Public Use
  Company Number: 20109090

PATIENT
  Sex: Male

DRUGS (1)
  1. LIORESAL [Suspect]
     Indication: MUSCLE SPASTICITY
     Dosage: 339.2 MCG, DAILY, INTRATHECAL
     Route: 037

REACTIONS (6)
  - CONVULSION [None]
  - DRUG WITHDRAWAL SYNDROME [None]
  - HYPERAESTHESIA [None]
  - MUSCLE CONTRACTURE [None]
  - MUSCLE SPASTICITY [None]
  - TREMOR [None]
